FAERS Safety Report 4594821-2 (Version None)
Quarter: 2005Q1

REPORT INFORMATION
  Report Type: 
  Country: None (occurrence: None)
  Receive Date: 20050223
  Receipt Date: 20050214
  Transmission Date: 20050727
  Serious: Yes (Life-Threatening, Hospitalization)
  Sender: FDA-Public Use
  Company Number: MX-2005-002171

PATIENT
  Age: 51 Year
  Sex: Male

DRUGS (4)
  1. MAGNEVIST [Suspect]
     Indication: ANGIOGRAM
     Dosage: 30 ML, 1 DOSE, INTRAVENOUS
     Route: 042
     Dates: start: 20050119, end: 20050119
  2. CLONIDINE [Concomitant]
  3. FELODIPINE W/METOPROLOL SUCCINATE [Concomitant]
  4. HYDROCHLOROTHIAZIDE W/VALSARTAN (VALSARTAN) [Concomitant]

REACTIONS (4)
  - CARDIAC ARREST [None]
  - CARDIAC FAILURE [None]
  - LARYNGOSPASM [None]
  - MUSCLE CONTRACTIONS INVOLUNTARY [None]
